FAERS Safety Report 5812419-2 (Version None)
Quarter: 2008Q3

REPORT INFORMATION
  Report Type: 
  Country: None (occurrence: None)
  Receive Date: 20080711
  Receipt Date: 20070704
  Transmission Date: 20090109
  Serious: Yes (Hospitalization)
  Sender: FDA-Public Use
  Company Number: 20520060454

PATIENT
  Age: 28 Year
  Sex: Male

DRUGS (1)
  1. LANREOTIDE AUTOGEL(LANREOTIDE ACETATE) (LANREOTIDE ACETATE) [Suspect]
     Indication: INVESTIGATION
     Dosage: 240 MG ONCE (ONCE) SUBCUTANEOUS 1 ADMINISTRATION
     Route: 058
     Dates: start: 20051014, end: 20051014

REACTIONS (6)
  - ACUTE ABDOMEN [None]
  - BILIARY COLIC [None]
  - CELL DEATH [None]
  - CHOLECYSTITIS CHRONIC [None]
  - CHOLELITHIASIS [None]
  - HYPERAEMIA [None]
